FAERS Safety Report 17078389 (Version 1)
Quarter: 2019Q4

REPORT INFORMATION
  Report Type: Spontaneous
  Country: CN (occurrence: CN)
  Receive Date: 20191126
  Receipt Date: 20191126
  Transmission Date: 20200122
  Serious: Yes (Hospitalization, Other)
  Sender: FDA-Public Use
  Company Number: CN-BAXTER-2019BAX023686

PATIENT
  Age: 53 Year
  Sex: Male
  Weight: 56.5 kg

DRUGS (6)
  1. 0.9% SODIUM CHLORIDE INJECTION [Suspect]
     Active Substance: SODIUM CHLORIDE
     Indication: MEDICATION DILUTION
     Dosage: THREE CYCLES
     Route: 041
  2. 0.9% SODIUM CHLORIDE INJECTION [Suspect]
     Active Substance: SODIUM CHLORIDE
     Dosage: FOURTH CYCLE
     Route: 041
     Dates: start: 20191010, end: 20191010
  3. 0.9% SODIUM CHLORIDE INJECTION [Suspect]
     Active Substance: SODIUM CHLORIDE
     Dosage: FIFTH CYCLE
     Route: 041
     Dates: start: 20191031
  4. NUO XIN [Suspect]
     Active Substance: CISPLATIN
     Dosage: FOURTH CYCLE
     Route: 041
     Dates: start: 20191010, end: 20191010
  5. NUO XIN [Suspect]
     Active Substance: CISPLATIN
     Indication: CHEMOTHERAPY
     Dosage: THREE CYCLES
     Route: 041
  6. NUO XIN [Suspect]
     Active Substance: CISPLATIN
     Dosage: FIFTH CYCLE
     Route: 041
     Dates: start: 20191031

REACTIONS (2)
  - Granulocytopenia [Recovering/Resolving]
  - White blood cell count decreased [Recovering/Resolving]

NARRATIVE: CASE EVENT DATE: 20191026
